FAERS Safety Report 24738891 (Version 1)
Quarter: 2024Q4

REPORT INFORMATION
  Report Type: Spontaneous
  Country: US (occurrence: US)
  Receive Date: 20241216
  Receipt Date: 20241216
  Transmission Date: 20250115
  Serious: No
  Sender: BAYER HEALTHCARE LLC
  Company Number: US-BAYER-2024A177548

PATIENT

DRUGS (5)
  1. ALEVE [Suspect]
     Active Substance: NAPROXEN SODIUM
     Indication: Multiple allergies
  2. ALEVE [Suspect]
     Active Substance: NAPROXEN SODIUM
     Indication: Pain
  3. ALEVE [Suspect]
     Active Substance: NAPROXEN SODIUM
     Indication: Pyrexia
  4. ALEVE [Suspect]
     Active Substance: NAPROXEN SODIUM
     Indication: Headache
  5. ALEVE [Suspect]
     Active Substance: NAPROXEN SODIUM
     Indication: Myalgia

REACTIONS (1)
  - Drug effective for unapproved indication [Unknown]
